FAERS Safety Report 5123883-9 (Version None)
Quarter: 2006Q4

REPORT INFORMATION
  Report Type: 
  Country: None (occurrence: None)
  Receive Date: 20061010
  Receipt Date: 20061005
  Transmission Date: 20070319
  Serious: Yes (Other)
  Sender: FDA-Public Use
  Company Number: DE-GLAXOSMITHKLINE-D0051087A

PATIENT
  Age: 43 Year
  Sex: Female
  Weight: 70 kg

DRUGS (2)
  1. LAMICTAL [Suspect]
     Indication: EPILEPSY
     Dosage: 150MG TWICE PER DAY
     Route: 048
     Dates: start: 20020101
  2. KEPPRA [Suspect]
     Indication: EPILEPSY
     Dosage: 1G TWICE PER DAY
     Route: 048
     Dates: start: 20020101

REACTIONS (1)
  - ABORTION SPONTANEOUS [None]
